FAERS Safety Report 12171766 (Version 1)
Quarter: 2016Q1

REPORT INFORMATION
  Report Type: Spontaneous
  Country: US (occurrence: US)
  Receive Date: 20160311
  Receipt Date: 20160311
  Transmission Date: 20160526
  Serious: No
  Sender: FDA-Public Use
  Company Number: US-GALDERMA-US15008991

PATIENT
  Age: 57 Year
  Sex: Male

DRUGS (8)
  1. MIRVASO [Suspect]
     Active Substance: BRIMONIDINE TARTRATE
     Dosage: 0.33%
     Route: 061
     Dates: start: 201511, end: 201512
  2. MIRVASO [Suspect]
     Active Substance: BRIMONIDINE TARTRATE
     Dosage: 0.33%
     Route: 061
     Dates: start: 20151021, end: 20151203
  3. PROPRANOLOL [Concomitant]
     Active Substance: PROPRANOLOL\PROPRANOLOL HYDROCHLORIDE
     Dosage: 20 MG
     Route: 048
     Dates: start: 20151021
  4. AVEENO DAILY MOISTURIZING [Concomitant]
     Active Substance: DIMETHICONE
     Indication: DRY SKIN PROPHYLAXIS
     Route: 061
     Dates: start: 201511
  5. FINACEA (AZELAIC ACID) FOAM [Concomitant]
     Dosage: 15%
     Route: 061
     Dates: start: 20151021
  6. AVEENO REDNESS REDUCING CLEANSER [Concomitant]
     Indication: THERAPEUTIC SKIN CARE TOPICAL
     Route: 061
     Dates: start: 201511
  7. LISINOPRIL. [Concomitant]
     Active Substance: LISINOPRIL
     Indication: HYPERTENSION
     Dosage: 10 MG
     Route: 048
     Dates: start: 2010
  8. MIRVASO [Suspect]
     Active Substance: BRIMONIDINE TARTRATE
     Indication: ROSACEA
     Dosage: 0.33%
     Route: 061
     Dates: start: 20151213, end: 20151215

REACTIONS (2)
  - Drug ineffective [Recovered/Resolved]
  - Rosacea [Not Recovered/Not Resolved]

NARRATIVE: CASE EVENT DATE: 20151213
